FAERS Safety Report 5788360-0 (Version None)
Quarter: 2008Q2

REPORT INFORMATION
  Report Type: 
  Country: None (occurrence: None)
  Receive Date: 20080625
  Receipt Date: 20080613
  Transmission Date: 20081010
  Serious: Yes (Hospitalization)
  Sender: FDA-Public Use
  Company Number: FR-PFIZER INC-2008050579

PATIENT
  Sex: Male

DRUGS (3)
  1. LYRICA [Suspect]
     Indication: PAIN
  2. MORPHINE SULFATE [Concomitant]
  3. BROMAZEPAM [Concomitant]

REACTIONS (5)
  - ATAXIA [None]
  - COORDINATION ABNORMAL [None]
  - DYSARTHRIA [None]
  - GASTROINTESTINAL DISORDER [None]
  - TREMOR [None]
